FAERS Safety Report 25373233 (Version 3)
Quarter: 2025Q3

REPORT INFORMATION
  Report Type: Spontaneous
  Country: TW (occurrence: TW)
  Receive Date: 20250529
  Receipt Date: 20250830
  Transmission Date: 20251020
  Serious: Yes (Hospitalization, Other)
  Sender: CSL BEHRING
  Company Number: TW-BEH-2025204643

PATIENT
  Age: 7 Month
  Sex: Male
  Weight: 8 kg

DRUGS (1)
  1. HUMAN IMMUNOGLOBULIN G [Suspect]
     Active Substance: HUMAN IMMUNOGLOBULIN G
     Indication: Kawasaki^s disease
     Dosage: 2000 MG/KG, QD
     Route: 041
     Dates: start: 20200719, end: 20200722

REACTIONS (13)
  - Haemolytic anaemia [Recovered/Resolved]
  - Pallor [Recovered/Resolved]
  - Pallor [Recovered/Resolved]
  - Pallor [Recovered/Resolved]
  - Decreased activity [Recovered/Resolved]
  - Asthenia [Recovered/Resolved]
  - Peripheral coldness [Recovered/Resolved]
  - Capillary nail refill test abnormal [Recovered/Resolved]
  - Livedo reticularis [Recovered/Resolved]
  - Coombs test positive [Recovered/Resolved]
  - Chromaturia [Recovered/Resolved]
  - Hypotension [Recovered/Resolved]
  - Heart rate abnormal [Recovered/Resolved]

NARRATIVE: CASE EVENT DATE: 20200721
